FAERS Safety Report 24688859 (Version 1)
Quarter: 2024Q4

REPORT INFORMATION
  Report Type: Spontaneous
  Country: SE (occurrence: SE)
  Receive Date: 20241203
  Receipt Date: 20241203
  Transmission Date: 20250115
  Serious: Yes (Life-Threatening, Hospitalization, Other)
  Sender: CHEPLAPHARM
  Company Number: SE-CHEPLA-2024015057

PATIENT
  Age: 25 Year
  Sex: Female

DRUGS (7)
  1. OLANZAPINE [Suspect]
     Active Substance: OLANZAPINE
  2. BUPROPION [Concomitant]
     Active Substance: BUPROPION
     Dosage: 250 TABLETS (150 MG = 37.5 G BUPROPION)
  3. ALPRAZOLAM [Concomitant]
     Active Substance: ALPRAZOLAM
  4. DIAZEPAM [Concomitant]
     Active Substance: DIAZEPAM
  5. ZOLPIDEM [Concomitant]
     Active Substance: ZOLPIDEM TARTRATE
  6. TRIMEPRAZINE [Concomitant]
     Active Substance: TRIMEPRAZINE
  7. METHYLPHENIDATE [Concomitant]
     Active Substance: METHYLPHENIDATE

REACTIONS (4)
  - Loss of consciousness [Unknown]
  - Hypotension [Unknown]
  - Arrhythmia [Unknown]
  - Cardiac arrest [Unknown]
